FAERS Safety Report 25272684 (Version 6)
Quarter: 2025Q3

REPORT INFORMATION
  Report Type: Report from Study
  Country: US (occurrence: US)
  Receive Date: 20250506
  Receipt Date: 20250808
  Transmission Date: 20251021
  Serious: Yes (Hospitalization, Other)
  Sender: TAKEDA
  Company Number: US-TAKEDA-2024TUS057649

PATIENT
  Age: 57 Year
  Sex: Female

DRUGS (3)
  1. HUMAN IMMUNOGLOBULIN G [Suspect]
     Active Substance: HUMAN IMMUNOGLOBULIN G
     Indication: Primary immunodeficiency syndrome
  2. HUMAN IMMUNOGLOBULIN G [Suspect]
     Active Substance: HUMAN IMMUNOGLOBULIN G
     Indication: Immunodeficiency common variable
     Dosage: 40 GRAM, MONTHLY
  3. HUMAN IMMUNOGLOBULIN G [Suspect]
     Active Substance: HUMAN IMMUNOGLOBULIN G

REACTIONS (20)
  - Infection [Unknown]
  - Tooth disorder [Unknown]
  - Renal disorder [Unknown]
  - Limb injury [Not Recovered/Not Resolved]
  - Hepatic steatosis [Unknown]
  - Back disorder [Unknown]
  - Arthritis [Unknown]
  - Nephrolithiasis [Unknown]
  - Sinus disorder [Unknown]
  - General physical health deterioration [Unknown]
  - Blood immunoglobulin G increased [Unknown]
  - Immunoglobulins abnormal [Unknown]
  - Oral disorder [Unknown]
  - Sinusitis [Unknown]
  - Rhinorrhoea [Unknown]
  - Contusion [Unknown]
  - Oropharyngeal pain [Unknown]
  - Influenza [Unknown]
  - Malaise [Unknown]
  - Inflammation [Unknown]

NARRATIVE: CASE EVENT DATE: 20240607
